FAERS Safety Report 6711797-X (Version None)
Quarter: 2010Q2

REPORT INFORMATION
  Report Type: 
  Country: None (occurrence: None)
  Receive Date: 20100505
  Receipt Date: 20100422
  Transmission Date: 20101027
  Serious: Yes (Hospitalization)
  Sender: FDA-Public Use
  Company Number: US-ROCHE-700975

PATIENT
  Age: 55 Year
  Sex: Female
  Weight: 75.5 kg

DRUGS (4)
  1. BLINDED BEVACIZUMAB [Suspect]
     Indication: GLIOBLASTOMA MULTIFORME
     Dosage: OVER 30-90 MIN
     Route: 042
     Dates: start: 20100326
  2. BLINDED BEVACIZUMAB [Suspect]
     Dosage: OVER 30-90 MIN
     Route: 042
     Dates: start: 20100408
  3. TEMOZOLOMIDE [Suspect]
     Indication: GLIOBLASTOMA MULTIFORME
     Route: 048
     Dates: start: 20100304
  4. TEMOZOLOMIDE [Suspect]
     Route: 048
     Dates: start: 20100414

REACTIONS (1)
  - CONVULSION [None]
